FAERS Safety Report 4728221-9 (Version None)
Quarter: 2005Q3

REPORT INFORMATION
  Report Type: 
  Country: None (occurrence: None)
  Receive Date: 20050727
  Receipt Date: 20050711
  Transmission Date: 20060218
  Serious: Yes (Hospitalization)
  Sender: FDA-Public Use
  Company Number: WAES 0507GBR00062

PATIENT
  Age: 61 Year
  Sex: Male

DRUGS (8)
  1. ZOCOR [Suspect]
     Indication: HYPERLIPIDAEMIA
     Dosage: SEE IMAGE
     Dates: end: 20050518
  2. ZOCOR [Suspect]
     Indication: HYPERLIPIDAEMIA
     Dosage: SEE IMAGE
     Dates: start: 20050519, end: 20050701
  3. ACETAMINOPHEN AND CODEINE PHOSPHATE [Concomitant]
  4. AMLODIPINE BESYLATE [Concomitant]
  5. ASPIRIN [Concomitant]
  6. IPRATROPIUM BROMIDE [Concomitant]
  7. ISOSORBIDE MONONITRATE [Concomitant]
  8. LISINOPRIL [Concomitant]

REACTIONS (1)
  - CELLULITIS [None]
